FAERS Safety Report 19592875 (Version 1)
Quarter: 2021Q3

REPORT INFORMATION
  Report Type: Report from Study
  Country: JP (occurrence: JP)
  Receive Date: 20210722
  Receipt Date: 20210722
  Transmission Date: 20211014
  Serious: Yes (Death, Other)
  Sender: FDA-Public Use
  Company Number: JP-TAKEDA-JP201504266

PATIENT
  Age: 11 Month
  Sex: Female

DRUGS (20)
  1. FAMOTIDINE. [Concomitant]
     Active Substance: FAMOTIDINE
     Indication: GAUCHER^S DISEASE TYPE II
     Dosage: 6 MG, UNKNOWN
     Route: 048
     Dates: start: 20150204
  2. C CYSTEN [Concomitant]
     Active Substance: CARBOCYSTEINE
     Indication: GAUCHER^S DISEASE TYPE II
     Dosage: 150 MG, UNKNOWN
     Route: 048
     Dates: start: 20150123
  3. AMBROXOL HCL [Concomitant]
     Active Substance: AMBROXOL HYDROCHLORIDE
     Dosage: 30 MILLIGRAM/KILOGRAM
  4. EPIRENAT [Concomitant]
     Active Substance: VALPROATE SODIUM
     Dosage: 1 ML, UNKNOWN
     Route: 048
     Dates: start: 20160623
  5. HORIZON [Concomitant]
     Active Substance: DIAZEPAM
     Indication: GAUCHER^S DISEASE TYPE II
     Dosage: 1 MG, UNKNOWN
     Route: 048
     Dates: start: 20150521
  6. EPIRENAT [Concomitant]
     Active Substance: VALPROATE SODIUM
     Dosage: 2 ML, UNKNOWN
     Route: 048
     Dates: start: 20160606, end: 20160622
  7. HERBAL EXTRACT NOS [Concomitant]
     Active Substance: HERBALS
     Indication: GAUCHER^S DISEASE TYPE II
     Dosage: 1 G, UNKNOWN
     Route: 048
     Dates: start: 20150204
  8. EPIRENAT [Concomitant]
     Active Substance: VALPROATE SODIUM
     Indication: GAUCHER^S DISEASE TYPE II
     Dosage: 6.6 ML, UNKNOWN
     Route: 048
     Dates: start: 20150514, end: 20160523
  9. VELAGLUCERASE ALFA [Suspect]
     Active Substance: VELAGLUCERASE ALFA
     Indication: GAUCHER^S DISEASE TYPE II
     Dosage: 60 IU/KG, 1X/2WKS
     Route: 041
     Dates: start: 20150427, end: 202003
  10. AMBROXOL HCL [Concomitant]
     Active Substance: AMBROXOL HYDROCHLORIDE
     Indication: GAUCHER^S DISEASE TYPE II
     Dosage: 25 MILLIGRAM/KILOGRAM, UNKNOWN
     Route: 048
     Dates: start: 20150123, end: 20151020
  11. RISPERIDON [Concomitant]
     Active Substance: RISPERIDONE
     Indication: GAUCHER^S DISEASE TYPE II
     Dosage: 0.5 ML, UNKNOWN
     Route: 048
     Dates: start: 20150418
  12. LIORESAL [Concomitant]
     Active Substance: BACLOFEN
     Indication: GAUCHER^S DISEASE TYPE II
     Dosage: 7 MG, UNKNOWN
     Route: 048
     Dates: start: 20150819
  13. HYDROCORTONE                       /00028603/ [Concomitant]
     Active Substance: HYDROCORTISONE SODIUM PHOSPHATE
     Indication: PROPHYLAXIS
     Dosage: 50 MG, 1X/2WKS
     Route: 042
     Dates: start: 20150511, end: 20160411
  14. PHENOBAL [PHENOBARBITAL] [Concomitant]
     Active Substance: PHENOBARBITAL
     Indication: GAUCHER^S DISEASE TYPE II
     Dosage: 120 MILLIGRAM, UNKNOWN
     Route: 048
  15. E KEPPRA [Concomitant]
     Active Substance: LEVETIRACETAM
     Indication: GAUCHER^S DISEASE TYPE II
     Dosage: 330 MG, UNKNOWN
     Route: 048
     Dates: start: 20150319
  16. EPIRENAT [Concomitant]
     Active Substance: VALPROATE SODIUM
     Dosage: 3 ML, UNKNOWN
     Route: 048
     Dates: start: 20160524, end: 20160605
  17. L CARTIN FF [Concomitant]
     Active Substance: LEVOCARNITINE
     Indication: PROPHYLAXIS
     Dosage: 1.3 ML, UNKNOWN
     Route: 048
     Dates: start: 20150514
  18. ATARAX?P                           /00058402/ [Concomitant]
     Active Substance: HYDROXYZINE HYDROCHLORIDE
     Indication: PROPHYLAXIS
     Dosage: 5 MG, 1X/2WKS
     Route: 042
     Dates: start: 20150427, end: 20160411
  19. PREDONINE                          /00016203/ [Concomitant]
     Active Substance: PREDNISOLONE SODIUM SUCCINATE
     Indication: PROPHYLAXIS
     Dosage: 5 MG, 1X/2WKS
     Route: 042
     Dates: start: 20150511, end: 20160411
  20. BACLOFEN. [Concomitant]
     Active Substance: BACLOFEN
     Indication: GAUCHER^S DISEASE TYPE II
     Dosage: UNK, UNKNOWN
     Route: 065

REACTIONS (9)
  - Foot fracture [Recovered/Resolved]
  - Humerus fracture [Recovered/Resolved]
  - Myoclonic epilepsy [Fatal]
  - Pyrexia [Recovered/Resolved]
  - Humerus fracture [Recovered/Resolved]
  - Pyrexia [Recovered/Resolved]
  - Tibia fracture [Recovered/Resolved]
  - Foot fracture [Recovered/Resolved]
  - Asphyxia [Fatal]

NARRATIVE: CASE EVENT DATE: 20150428
